FAERS Safety Report 6764826-1 (Version None)
Quarter: 2010Q2

REPORT INFORMATION
  Report Type: 
  Country: None (occurrence: None)
  Receive Date: 20100609
  Receipt Date: 20100511
  Transmission Date: 20101027
  Serious: No
  Sender: FDA-Public Use
  Company Number: 2010011611

PATIENT
  Sex: Male

DRUGS (3)
  1. CHILDREN'S ZYRTEC ALLERGY [Suspect]
     Indication: HYPERSENSITIVITY
     Dosage: ^LITTLE SPOONS^ UNSPECIFIED,ORAL
     Route: 048
  2. CHILDREN'S TYLENOL SUSPENSION [Suspect]
     Indication: OROPHARYNGEAL PAIN
     Dosage: ORAL
     Route: 048
  3. CHILDREN'S MOTRIN [Suspect]
     Indication: OROPHARYNGEAL PAIN
     Dosage: ORAL
     Route: 048

REACTIONS (2)
  - BLISTER [None]
  - PRODUCT QUALITY ISSUE [None]
